FAERS Safety Report 24840597 (Version 1)
Quarter: 2025Q1

REPORT INFORMATION
  Report Type: Spontaneous
  Country: US (occurrence: US)
  Receive Date: 20250114
  Receipt Date: 20250114
  Transmission Date: 20250408
  Serious: No
  Sender: CSL BEHRING
  Company Number: US-BEH-2025191462

PATIENT
  Age: 70 Year

DRUGS (1)
  1. HIZENTRA [Suspect]
     Active Substance: HUMAN IMMUNOGLOBULIN G
     Route: 065

REACTIONS (5)
  - Infusion site swelling [Unknown]
  - Infusion site erythema [Unknown]
  - Infusion site haemorrhage [Unknown]
  - Injection site rash [Unknown]
  - Injection site vesicles [Unknown]
